FAERS Safety Report 24960898 (Version 1)
Quarter: 2025Q1

REPORT INFORMATION
  Report Type: Spontaneous
  Country: US (occurrence: None)
  Receive Date: 20250211
  Receipt Date: 20250211
  Transmission Date: 20250408
  Serious: No
  Sender: FDA-CTU
  Company Number: None

PATIENT
  Age: 24 Year
  Sex: Female
  Weight: 92.7 kg

DRUGS (8)
  1. NEXPLANON [Suspect]
     Active Substance: ETONOGESTREL
     Indication: Menstrual disorder
     Dates: start: 20240401
  2. NEXPLANON [Suspect]
     Active Substance: ETONOGESTREL
     Indication: Premenstrual dysphoric disorder
  3. NEXPLANON [Suspect]
     Active Substance: ETONOGESTREL
     Indication: Premenstrual syndrome
  4. WELLBUTRIN [Concomitant]
     Active Substance: BUPROPION HYDROCHLORIDE
  5. WEGOVY [Concomitant]
     Active Substance: SEMAGLUTIDE
  6. CLARITIN [Concomitant]
     Active Substance: LORATADINE
  7. MAGENISUM [Concomitant]
  8. IBUPROFEN [Concomitant]
     Active Substance: IBUPROFEN

REACTIONS (2)
  - Complication associated with device [None]
  - Heavy menstrual bleeding [None]

NARRATIVE: CASE EVENT DATE: 20250211
